FAERS Safety Report 9303798 (Version 6)
Quarter: 2013Q4

REPORT INFORMATION
  Report Type: Report from Study
  Country: JP (occurrence: JP)
  Receive Date: 20130522
  Receipt Date: 20131007
  Transmission Date: 20140711
  Serious: Yes (Other)
  Sender: FDA-Public Use
  Company Number: JP-GLAXOSMITHKLINE-B0872451A

PATIENT
  Age: 25 Year
  Sex: Male

DRUGS (4)
  1. VOTRIENT 200MG [Suspect]
     Indication: ALVEOLAR RHABDOMYOSARCOMA
     Dosage: 800MG PER DAY
     Route: 048
     Dates: start: 20130220, end: 20130306
  2. VOTRIENT 200MG [Suspect]
     Indication: ALVEOLAR RHABDOMYOSARCOMA
     Dosage: 400MG PER DAY
     Route: 048
     Dates: start: 20130426, end: 20130607
  3. VOTRIENT 200MG [Suspect]
     Indication: ALVEOLAR RHABDOMYOSARCOMA
     Dosage: 200MG PER DAY
     Route: 048
     Dates: start: 20130621, end: 20130808
  4. UNKNOWN DRUG [Concomitant]
     Route: 065

REACTIONS (10)
  - Electrocardiogram ST-T change [Not Recovered/Not Resolved]
  - Electrocardiogram ST-T change [Recovering/Resolving]
  - Nausea [Recovering/Resolving]
  - Asthenia [Recovering/Resolving]
  - Diarrhoea [Recovering/Resolving]
  - Hypertension [Recovering/Resolving]
  - Nausea [Recovering/Resolving]
  - Hypertension [Recovering/Resolving]
  - Diarrhoea [Recovering/Resolving]
  - Asthenia [Recovering/Resolving]
